FAERS Safety Report 8854167 (Version 1)
Quarter: 2012Q4

REPORT INFORMATION
  Report Type: 
  Country: FR (occurrence: FR)
  Receive Date: 20121022
  Receipt Date: 20121022
  Transmission Date: 20130627
  Serious: Yes (Hospitalization, Other)
  Sender: FDA-Public Use
  Company Number: FR-BRISTOL-MYERS SQUIBB COMPANY-17034943

PATIENT
  Age: 75 Year
  Sex: Female

DRUGS (3)
  1. TAXOL [Suspect]
     Indication: NEOPLASM
     Route: 042
     Dates: end: 20120626
  2. CARBOPLATINE [Suspect]
     Indication: NEOPLASM
     Route: 042
     Dates: end: 20120626
  3. AVASTIN [Suspect]
     Indication: NEOPLASM
     Route: 042
     Dates: end: 20120626

REACTIONS (4)
  - Diarrhoea [Unknown]
  - Renal failure acute [Unknown]
  - Agranulocytosis [Recovered/Resolved]
  - Atelectasis [Unknown]
